FAERS Safety Report 10039944 (Version 2)
Quarter: 2014Q1

REPORT INFORMATION
  Report Type: Spontaneous
  Country: FR (occurrence: FR)
  Receive Date: 20140326
  Receipt Date: 20140326
  Transmission Date: 20141002
  Serious: Yes (Disabling)
  Sender: FDA-Public Use
  Company Number: FR-JNJFOC-20140206949

PATIENT
  Age: 19 Year
  Sex: Female
  Weight: 54 kg

DRUGS (4)
  1. REMICADE [Suspect]
     Indication: CROHN^S DISEASE
     Route: 042
     Dates: start: 20140124
  2. REMICADE [Suspect]
     Indication: CROHN^S DISEASE
     Route: 042
     Dates: start: 201402
  3. PREVENAR [Concomitant]
     Indication: INFECTION PROPHYLAXIS
     Route: 058
     Dates: start: 20140124
  4. SOLUPRED [Concomitant]
     Indication: CROHN^S DISEASE
     Route: 048
     Dates: start: 20140120

REACTIONS (1)
  - Sciatic nerve neuropathy [Unknown]
